FAERS Safety Report 8520113 (Version 3)
Quarter: 2013Q3

REPORT INFORMATION
  Report Type: Spontaneous
  Country: US (occurrence: US)
  Receive Date: 20120418
  Receipt Date: 20130826
  Transmission Date: 20140515
  Serious: Yes (Hospitalization, Other)
  Sender: FDA-Public Use
  Company Number: US-US-EMD SERONO, INC.-7125876

PATIENT
  Age: 39 Year
  Sex: Female

DRUGS (2)
  1. REBIF [Suspect]
     Indication: MULTIPLE SCLEROSIS
     Route: 058
     Dates: start: 20120130, end: 20120315
  2. REBIF [Suspect]
     Route: 058
     Dates: start: 20130321

REACTIONS (6)
  - Anxiety [Unknown]
  - Stress [Unknown]
  - Suicidal ideation [Unknown]
  - Depression [Not Recovered/Not Resolved]
  - Normal newborn [Recovered/Resolved]
  - Maternal exposure during pregnancy [Recovered/Resolved]
